FAERS Safety Report 9717403 (Version 1)
Quarter: 2013Q4

REPORT INFORMATION
  Report Type: Spontaneous
  Country: US (occurrence: US)
  Receive Date: 20131127
  Receipt Date: 20131127
  Transmission Date: 20140711
  Serious: No
  Sender: FDA-Public Use
  Company Number: US-PFIZER INC-2013337924

PATIENT
  Sex: Female

DRUGS (5)
  1. GEODON [Suspect]
     Indication: HEMIPLEGIA
     Dosage: 1 MG, 1X/DAY
     Route: 030
     Dates: start: 20131124, end: 20131125
  2. GEODON [Suspect]
     Indication: DISCOMFORT
  3. GEODON [Suspect]
     Indication: HEAD DISCOMFORT
  4. ATIVAN [Concomitant]
     Dosage: 1 MG, UNK
     Route: 030
  5. BENADRYL [Concomitant]
     Dosage: UNK
     Route: 030

REACTIONS (9)
  - Hypersensitivity [Unknown]
  - Oral discomfort [Unknown]
  - Thinking abnormal [Unknown]
  - Swollen tongue [Unknown]
  - Gingival swelling [Unknown]
  - Lip swelling [Unknown]
  - Toothache [Unknown]
  - Tinnitus [Unknown]
  - Off label use [Unknown]
